FAERS Safety Report 6965100-0 (Version None)
Quarter: 2010Q3

REPORT INFORMATION
  Report Type: 
  Country: None (occurrence: None)
  Receive Date: 20100903
  Receipt Date: 20100803
  Transmission Date: 20110219
  Serious: No
  Sender: FDA-Public Use
  Company Number: US-BAYER-201029862NA

PATIENT
  Age: 46 Year
  Sex: Female

DRUGS (1)
  1. ULTRAVIST 300 [Suspect]
     Indication: COMPUTERISED TOMOGRAM ABDOMEN
     Dosage: AS USED: 70 ML  UNIT DOSE: 300 ML
     Route: 042
     Dates: start: 20100803, end: 20100803

REACTIONS (1)
  - THROAT IRRITATION [None]
